FAERS Safety Report 6693749-1 (Version None)
Quarter: 2010Q2

REPORT INFORMATION
  Report Type: 
  Country: None (occurrence: None)
  Receive Date: 20100423
  Receipt Date: 20090813
  Transmission Date: 20101027
  Serious: No
  Sender: FDA-Public Use
  Company Number: A0802901A

PATIENT
  Sex: Male

DRUGS (2)
  1. DEXEDRINE [Suspect]
     Dosage: 10MG PER DAY
     Route: 048
  2. XYREM [Concomitant]

REACTIONS (1)
  - NAIL DISCOLOURATION [None]
